FAERS Safety Report 14377824 (Version 1)
Quarter: 2018Q1

REPORT INFORMATION
  Report Type: Spontaneous
  Country: GB (occurrence: FR)
  Receive Date: 20180111
  Receipt Date: 20180111
  Transmission Date: 20180509
  Serious: Yes (Hospitalization)
  Sender: FDA-Public Use
  Company Number: FR-FRESENIUS KABI-FK201800327

PATIENT
  Age: 88 Year
  Sex: Female
  Weight: 54 kg

DRUGS (21)
  1. TOBRADEX [Suspect]
     Active Substance: DEXAMETHASONE\TOBRAMYCIN
     Indication: ANTIBIOTIC PROPHYLAXIS
     Route: 047
     Dates: start: 20170228, end: 20170309
  2. PERFALGAN [Suspect]
     Active Substance: ACETAMINOPHEN
     Indication: PAIN PROPHYLAXIS
     Route: 042
     Dates: start: 20170227, end: 20170227
  3. CORTANCYL [Suspect]
     Active Substance: PREDNISONE
     Indication: VITRECTOMY
     Route: 048
     Dates: start: 20170228, end: 20170309
  4. ATARAX [Concomitant]
     Active Substance: HYDROXYZINE HYDROCHLORIDE
     Indication: RASH
     Route: 048
     Dates: start: 20170227, end: 20170227
  5. STERDEX [Suspect]
     Active Substance: DEXAMETHASONE\OXYTETRACYCLINE
     Indication: ANTIBIOTIC PROPHYLAXIS
     Route: 047
     Dates: start: 20170227, end: 20170228
  6. NEOSYNEPHRINE [Suspect]
     Active Substance: PHENYLEPHRINE HYDROCHLORIDE
     Indication: ANTIBIOTIC PROPHYLAXIS
     Route: 047
     Dates: start: 20170228, end: 20170228
  7. TRACRIUM [Suspect]
     Active Substance: ATRACURIUM BESYLATE
     Indication: ANAESTHESIA
     Route: 042
     Dates: start: 20170227, end: 20170227
  8. NEOSYNEPHRINE [Suspect]
     Active Substance: PHENYLEPHRINE HYDROCHLORIDE
     Indication: VITRECTOMY
     Route: 042
     Dates: start: 20170227, end: 20170227
  9. NEFOPAM [Suspect]
     Active Substance: NEFOPAM
     Indication: PAIN PROPHYLAXIS
     Route: 042
     Dates: start: 20170227, end: 20170227
  10. RIFAMYCINE CHIBRET [Suspect]
     Active Substance: RIFAMYCIN
     Indication: ANTIBIOTIC PROPHYLAXIS
     Route: 047
     Dates: start: 20170228, end: 20170306
  11. METHYLPREDNISOLONE. [Suspect]
     Active Substance: METHYLPREDNISOLONE
     Indication: VITRECTOMY
     Route: 042
     Dates: start: 20170227, end: 20170227
  12. SUFENTANIL [Suspect]
     Active Substance: SUFENTANIL
     Indication: ANAESTHESIA
     Route: 042
     Dates: start: 20170227, end: 20170227
  13. DESFLURANE. [Suspect]
     Active Substance: DESFLURANE
     Indication: ANAESTHESIA
     Route: 055
     Dates: start: 20170227, end: 20170227
  14. MYDRIATICUM [Suspect]
     Active Substance: TROPICAMIDE
     Indication: MYDRIASIS
     Route: 047
     Dates: start: 20170228, end: 20170228
  15. DEXAFREE [Suspect]
     Active Substance: DEXAMETHASONE SODIUM PHOSPHATE
     Indication: VITRECTOMY
     Route: 047
     Dates: start: 20170228, end: 20170228
  16. TOPALGIC (TRAMADOL HYDROCHLORIDE) [Suspect]
     Active Substance: TRAMADOL HYDROCHLORIDE
     Indication: PAIN
     Route: 048
     Dates: start: 20170228, end: 20170228
  17. AZYTER [Suspect]
     Active Substance: AZITHROMYCIN ANHYDROUS
     Indication: ANTIBIOTIC PROPHYLAXIS
     Route: 047
     Dates: start: 20170228, end: 20170228
  18. EPHEDRINE. [Suspect]
     Active Substance: EPHEDRINE
     Indication: VITRECTOMY
     Route: 042
     Dates: start: 20170227, end: 20170227
  19. PROPOFOL (MANUFACTURER UNKNOWN) [Suspect]
     Active Substance: PROPOFOL
     Indication: ANAESTHESIA
     Route: 042
     Dates: start: 20170227, end: 20170227
  20. COMBIGAN [Suspect]
     Active Substance: BRIMONIDINE TARTRATE\TIMOLOL MALEATE
     Indication: VITRECTOMY
     Route: 047
     Dates: start: 20170228, end: 20170309
  21. OFLOCET [Suspect]
     Active Substance: OFLOXACIN
     Indication: ANTIBIOTIC PROPHYLAXIS
     Route: 048
     Dates: start: 20170227, end: 20170227

REACTIONS (1)
  - Drug reaction with eosinophilia and systemic symptoms [Recovering/Resolving]

NARRATIVE: CASE EVENT DATE: 20170306
